FAERS Safety Report 6696055-4 (Version None)
Quarter: 2010Q2

REPORT INFORMATION
  Report Type: 
  Country: None (occurrence: None)
  Receive Date: 20100426
  Receipt Date: 20100415
  Transmission Date: 20101027
  Serious: Yes (Hospitalization)
  Sender: FDA-Public Use
  Company Number: PHHO2010DE04611

PATIENT
  Sex: Male

DRUGS (1)
  1. CERTICAN [Suspect]
     Indication: LIVER TRANSPLANT
     Dosage: 4 MG / DAILY
     Route: 048
     Dates: start: 20070517

REACTIONS (3)
  - CONCOMITANT DISEASE PROGRESSION [None]
  - HYPOVITAMINOSIS [None]
  - POLYNEUROPATHY [None]
